FAERS Safety Report 8449102-3 (Version None)
Quarter: 2012Q2

REPORT INFORMATION
  Report Type: 
  Country: None (occurrence: None)
  Receive Date: 20120619
  Receipt Date: 20120613
  Transmission Date: 20120825
  Serious: Yes (Death, Hospitalization)
  Sender: FDA-Public Use
  Company Number: US-ACTELION-A-NJ2012-64104

PATIENT

DRUGS (5)
  1. TRACLEER [Suspect]
     Indication: PULMONARY ARTERIAL HYPERTENSION
     Dosage: 125 MG, BID
     Route: 048
     Dates: start: 20051011, end: 20120524
  2. VENTAVIS [Suspect]
     Indication: PULMONARY ARTERIAL HYPERTENSION
     Dosage: 6-9 X DAILY
     Route: 055
     Dates: start: 20120403, end: 20120501
  3. ASPIRIN [Concomitant]
  4. COUMADIN [Concomitant]
  5. PLAVIX [Concomitant]

REACTIONS (9)
  - BLOOD PRESSURE DECREASED [None]
  - DEATH [None]
  - PULMONARY OEDEMA [None]
  - LOSS OF CONSCIOUSNESS [None]
  - SYNCOPE [None]
  - HEADACHE [None]
  - DYSPNOEA [None]
  - COUGH [None]
  - DIZZINESS [None]
